FAERS Safety Report 17466007 (Version 1)
Quarter: 2020Q1

REPORT INFORMATION
  Report Type: Spontaneous
  Country: CA (occurrence: CA)
  Receive Date: 20200227
  Receipt Date: 20200227
  Transmission Date: 20200409
  Serious: Yes (Hospitalization, Other)
  Sender: FDA-Public Use
  Company Number: CA-TEVA-2020-CA-1189913

PATIENT
  Age: 19 Year
  Sex: Male

DRUGS (13)
  1. PURIFIED PROTEIN DERIVATIVE OF TUBERCULIN [Concomitant]
     Route: 065
  2. PREDNISONE. [Suspect]
     Active Substance: PREDNISONE
     Indication: COLITIS ULCERATIVE
     Dosage: 50 MILLIGRAM DAILY;
     Route: 048
  3. PARA-AMINOSALICYLIC ACID [Suspect]
     Active Substance: AMINOSALICYLIC ACID
     Indication: COLITIS ULCERATIVE
     Route: 065
  4. INFLIXIMAB [Concomitant]
     Active Substance: INFLIXIMAB
     Indication: COLITIS ULCERATIVE
     Route: 042
  5. SALOFALK ALSO KNOWN AS MESALAMINE [Suspect]
     Active Substance: MESALAMINE
     Indication: COLITIS ULCERATIVE
     Route: 065
  6. ERGOCALCIFEROL. [Concomitant]
     Active Substance: ERGOCALCIFEROL
  7. ACETAMINOPHEN. [Concomitant]
     Active Substance: ACETAMINOPHEN
     Route: 048
  8. SACCHARATED IRON OXIDE [Concomitant]
     Active Substance: IRON SUCROSE
     Route: 042
  9. CALCIUM CARBONATE. [Concomitant]
     Active Substance: CALCIUM CARBONATE
     Dosage: 2500 MILLIGRAM DAILY;
     Route: 048
  10. GRAVOL [Concomitant]
     Active Substance: DIMENHYDRINATE
  11. VITAMIN B1 [Concomitant]
     Active Substance: THIAMINE HYDROCHLORIDE
     Dosage: 200 MILLIGRAM DAILY;
     Route: 048
  12. CALCIUM DPANTOTHENATE/ERGOCALCIFEROL/NICOTINAMIDE/PYRIDOXINEHYDROCHLOR [Concomitant]
     Dosage: 1 DOSAGE FORMS DAILY;
     Route: 048
  13. HYDROMORPHONE [Concomitant]
     Active Substance: HYDROMORPHONE

REACTIONS (5)
  - Abdominal pain [Not Recovered/Not Resolved]
  - Decreased appetite [Not Recovered/Not Resolved]
  - Drug ineffective [Not Recovered/Not Resolved]
  - Frequent bowel movements [Not Recovered/Not Resolved]
  - Hypophagia [Not Recovered/Not Resolved]
